FAERS Safety Report 9279147 (Version 1)
Quarter: 2013Q2

REPORT INFORMATION
  Report Type: Spontaneous
  Country: US (occurrence: US)
  Receive Date: 20130508
  Receipt Date: 20130508
  Transmission Date: 20140414
  Serious: No
  Sender: FDA-Public Use
  Company Number: US-TEVA-403499USA

PATIENT
  Sex: Male
  Weight: 81.72 kg

DRUGS (5)
  1. FENTORA [Suspect]
     Indication: BREAKTHROUGH PAIN
     Dates: start: 2009
  2. FENTORA [Suspect]
     Indication: NECK PAIN
  3. FENTORA [Suspect]
     Indication: PAIN
  4. DILAUDID [Concomitant]
     Indication: PAIN
  5. SOMA [Concomitant]
     Indication: MUSCLE RELAXANT THERAPY

REACTIONS (2)
  - Frustration [Unknown]
  - Off label use [Unknown]
